FAERS Safety Report 8548853-X (Version None)
Quarter: 2012Q3

REPORT INFORMATION
  Report Type: 
  Country: None (occurrence: None)
  Receive Date: 20120730
  Receipt Date: 20120718
  Transmission Date: 20120928
  Serious: Yes (Hospitalization)
  Sender: FDA-Public Use
  Company Number: DE-BRISTOL-MYERS SQUIBB COMPANY-15456726

PATIENT
  Age: 84 Year
  Sex: Female
  Weight: 96 kg

DRUGS (3)
  1. CAPECITABINE [Concomitant]
     Indication: COLORECTAL CANCER METASTATIC
     Route: 042
     Dates: start: 20100808, end: 20110201
  2. ERBITUX [Suspect]
     Indication: COLORECTAL CANCER
     Dosage: 250MG/M2:06OCT TO 01DEC2010(56D) 250MG/M2:15DEC10-26JAN11=42DAYS.
     Route: 042
     Dates: start: 20101006, end: 20110126
  3. GRANISETRON [Concomitant]
     Indication: PREMEDICATION
     Dosage: ONCE,6OCT-6OCT10,20OCT-20OCT10
     Route: 042
     Dates: start: 20101006, end: 20101020

REACTIONS (1)
  - PELVIC VENOUS THROMBOSIS [None]
